FAERS Safety Report 5272136-7 (Version None)
Quarter: 2007Q1

REPORT INFORMATION
  Report Type: 
  Country: None (occurrence: None)
  Receive Date: 20070320
  Receipt Date: 20070320
  Transmission Date: 20070707
  Serious: Yes (Life-Threatening)
  Sender: FDA-Public Use
  Company Number: None

PATIENT
  Age: 34 Year
  Sex: Male
  Weight: 148.3262 kg

DRUGS (1)
  1. CARBAMAZEPINE [Suspect]
     Indication: BIPOLAR DISORDER
     Dosage: 300MG BID PO
     Route: 048
     Dates: start: 20061207, end: 20070117

REACTIONS (3)
  - EOSINOPHILIA [None]
  - ERYTHEMA [None]
  - RASH PRURITIC [None]
